FAERS Safety Report 8905363 (Version 1)
Quarter: 2012Q4

REPORT INFORMATION
  Report Type: 
  Country: US (occurrence: US)
  Receive Date: 20121112
  Receipt Date: 20121112
  Transmission Date: 20130627
  Serious: Yes (Hospitalization)
  Sender: FDA-Public Use
  Company Number: US-BAYER-2012-116950

PATIENT
  Age: 50 Year
  Sex: Female

DRUGS (4)
  1. YAZ [Suspect]
  2. GIANVI [Suspect]
  3. AZITHROMYCIN [Concomitant]
     Dosage: 250 mg, UNK
  4. BENZONATATE [Concomitant]
     Dosage: 200 mg, UNK

REACTIONS (2)
  - Deep vein thrombosis [None]
  - Thrombophlebitis superficial [None]
